FAERS Safety Report 7762463-3 (Version None)
Quarter: 2011Q3

REPORT INFORMATION
  Report Type: 
  Country: None (occurrence: None)
  Receive Date: 20110920
  Receipt Date: 20110905
  Transmission Date: 20111222
  Serious: Yes (Hospitalization, Disabling, Other)
  Sender: FDA-Public Use
  Company Number: PHHY2011GB78781

PATIENT
  Age: 31 Year
  Sex: Female

DRUGS (10)
  1. MIRTAZAPINE [Suspect]
     Dosage: 30 MG, QD
  2. LORAZEPAM [Interacting]
     Dosage: UNK UKN, UNK
  3. PAROXETINE HCL [Interacting]
     Dosage: 20 MG, BID
     Dates: end: 20110501
  4. CLONAZEPAM [Interacting]
     Dosage: UNK UKN, UNK
  5. PAROXETINE HCL [Interacting]
     Dosage: 20 MG, TID
     Dates: start: 19990101
  6. PAROXETINE HCL [Interacting]
     Dosage: UNK UKN, UNK
     Dates: start: 20101101
  7. TRAMADOL HCL [Interacting]
     Indication: NECK PAIN
     Dosage: UNK UKN, UNK
  8. PROCYCLIDINE HYDROCHLORIDE 2MG TAB [Interacting]
     Dosage: UNK UKN, UNK
     Dates: start: 20110415
  9. QUETIAPINE [Interacting]
     Dosage: UNK UKN, UNK
  10. PROCYCLIDINE HYDROCHLORIDE 2MG TAB [Interacting]
     Indication: OCULOGYRIC CRISIS
     Dosage: UNK UKN, UNK
     Dates: start: 19950101

REACTIONS (82)
  - MANIA [None]
  - DISTURBANCE IN ATTENTION [None]
  - FATIGUE [None]
  - ASTHENIA [None]
  - DEPRESSION [None]
  - MALAISE [None]
  - INCONTINENCE [None]
  - VISION BLURRED [None]
  - SWOLLEN TONGUE [None]
  - PREGNANCY [None]
  - MATERNAL EXPOSURE DURING PREGNANCY [None]
  - TREMOR [None]
  - FEELING JITTERY [None]
  - CONVULSION [None]
  - ROAD TRAFFIC ACCIDENT [None]
  - DISORIENTATION [None]
  - LIP SWELLING [None]
  - HYPERCHLORHYDRIA [None]
  - JOINT STIFFNESS [None]
  - TINNITUS [None]
  - HEADACHE [None]
  - MYALGIA [None]
  - ARTHRALGIA [None]
  - DYSSTASIA [None]
  - NIGHTMARE [None]
  - DIZZINESS [None]
  - HALLUCINATION [None]
  - FEELING ABNORMAL [None]
  - INSOMNIA [None]
  - EYE PAIN [None]
  - MONOPARESIS [None]
  - MUSCULOSKELETAL STIFFNESS [None]
  - SLEEP DISORDER [None]
  - SOMNOLENCE [None]
  - BLOOD SODIUM DECREASED [None]
  - H1N1 INFLUENZA [None]
  - MENSTRUATION IRREGULAR [None]
  - SWELLING FACE [None]
  - HEART RATE INCREASED [None]
  - ABASIA [None]
  - MYDRIASIS [None]
  - DRUG INTERACTION [None]
  - CONTUSION [None]
  - DYSPNOEA [None]
  - ANXIETY [None]
  - SUICIDAL IDEATION [None]
  - CONFUSIONAL STATE [None]
  - AGITATION [None]
  - DECREASED APPETITE [None]
  - HYPERHIDROSIS [None]
  - PALLOR [None]
  - MOOD SWINGS [None]
  - FLUSHING [None]
  - PSYCHOTIC DISORDER [None]
  - APHASIA [None]
  - HYPOAESTHESIA [None]
  - TOXICITY TO VARIOUS AGENTS [None]
  - PREMATURE BABY [None]
  - RESTLESSNESS [None]
  - EMOTIONAL DISORDER [None]
  - PYREXIA [None]
  - CYANOSIS [None]
  - MATERNAL EXPOSURE BEFORE PREGNANCY [None]
  - SEROTONIN SYNDROME [None]
  - RESTLESS LEGS SYNDROME [None]
  - VISUAL IMPAIRMENT [None]
  - DELIRIUM [None]
  - VOMITING [None]
  - PAROSMIA [None]
  - SENSORY LOSS [None]
  - URINARY RETENTION [None]
  - GAIT DISTURBANCE [None]
  - OEDEMA MOUTH [None]
  - COGWHEEL RIGIDITY [None]
  - DROOLING [None]
  - SCHIZOPHRENIA [None]
  - NEUROLEPTIC MALIGNANT SYNDROME [None]
  - PREMATURE LABOUR [None]
  - DEPERSONALISATION [None]
  - PRURITUS [None]
  - PARAESTHESIA [None]
  - VIITH NERVE PARALYSIS [None]
